FAERS Safety Report 8519073-X (Version None)
Quarter: 2012Q3

REPORT INFORMATION
  Report Type: 
  Country: None (occurrence: None)
  Receive Date: 20120718
  Receipt Date: 20120712
  Transmission Date: 20120928
  Serious: Yes (Hospitalization)
  Sender: FDA-Public Use
  Company Number: IN-PFIZER INC-2012168090

PATIENT
  Age: 4 Year

DRUGS (1)
  1. PHENYTOIN [Suspect]

REACTIONS (2)
  - ACCIDENTAL EXPOSURE [None]
  - TOXICITY TO VARIOUS AGENTS [None]
